FAERS Safety Report 6859680-3 (Version None)
Quarter: 2010Q3

REPORT INFORMATION
  Report Type: 
  Country: None (occurrence: None)
  Receive Date: 20100720
  Receipt Date: 20100709
  Transmission Date: 20110219
  Serious: Yes (Hospitalization)
  Sender: FDA-Public Use
  Company Number: US-AMGEN-QUU423478

PATIENT
  Sex: Female

DRUGS (2)
  1. ENBREL [Suspect]
     Indication: RHEUMATOID ARTHRITIS
     Route: 058
     Dates: start: 20031127
  2. CELEBREX [Concomitant]
     Dates: end: 20060101

REACTIONS (9)
  - ABDOMINAL PAIN LOWER [None]
  - DISTURBANCE IN ATTENTION [None]
  - DRY EYE [None]
  - DYSARTHRIA [None]
  - FATIGUE [None]
  - INJECTION SITE PAIN [None]
  - PYREXIA [None]
  - VISUAL ACUITY REDUCED [None]
  - VOMITING [None]
